FAERS Safety Report 9140349 (Version 2)
Quarter: 2013Q2

REPORT INFORMATION
  Report Type: Spontaneous
  Country: US (occurrence: US)
  Receive Date: 20130305
  Receipt Date: 20130529
  Transmission Date: 20140414
  Serious: No
  Sender: FDA-Public Use
  Company Number: US-MYLANLABS-2013S1003016

PATIENT
  Age: 51 Year
  Sex: Female

DRUGS (11)
  1. SILDENAFIL TABLETS [Suspect]
     Indication: PULMONARY ARTERIAL HYPERTENSION
     Route: 048
     Dates: start: 20130101, end: 20130205
  2. K-DUR [Concomitant]
     Dosage: TWO TABS/ TID
     Route: 048
  3. LASIX [Concomitant]
     Route: 048
  4. LASIX [Concomitant]
     Route: 048
  5. PROTONIX [Concomitant]
     Route: 048
  6. DIOVAN [Concomitant]
     Route: 048
  7. TRACLEER /01587701/ [Concomitant]
     Dosage: PRN
     Route: 048
  8. COUMADIN [Concomitant]
     Dosage: 8MG SUNDAY AND THURSDAY AND 10MG EVERY OTHER DAY
     Route: 048
  9. MAG-OX [Concomitant]
     Route: 048
  10. IRON SULFATE [Concomitant]
     Route: 048
  11. ALBUTEROL [Concomitant]
     Dosage: INHALE TWO PUFFS, PRN

REACTIONS (5)
  - Vitreous floaters [Recovered/Resolved]
  - Visual impairment [Recovered/Resolved]
  - Oedema peripheral [Recovered/Resolved]
  - Generalised oedema [Recovered/Resolved]
  - Oedema [Recovered/Resolved]
